FAERS Safety Report 15474606 (Version 1)
Quarter: 2018Q4

REPORT INFORMATION
  Report Type: Report from Study
  Country: BR (occurrence: BR)
  Receive Date: 20181008
  Receipt Date: 20181008
  Transmission Date: 20190205
  Serious: Yes (Other)
  Sender: FDA-Public Use
  Company Number: BR-SA-2018SA226375

PATIENT
  Sex: Female
  Weight: 78 kg

DRUGS (1)
  1. INSULIN GLULISINE [Suspect]
     Active Substance: INSULIN GLULISINE
     Dosage: UNK
     Dates: start: 2014

REACTIONS (6)
  - Varicose vein [Recovering/Resolving]
  - Poor peripheral circulation [Recovering/Resolving]
  - Visual impairment [Not Recovered/Not Resolved]
  - Infected skin ulcer [Recovering/Resolving]
  - Movement disorder [Recovering/Resolving]
  - Gait disturbance [Not Recovered/Not Resolved]
